FAERS Safety Report 12966730 (Version 1)
Quarter: 2016Q4

REPORT INFORMATION
  Report Type: Spontaneous
  Country: US (occurrence: US)
  Receive Date: 20161119
  Receipt Date: 20161119
  Transmission Date: 20170207
  Serious: No
  Sender: FDA-Public Use
  Company Number: None

PATIENT
  Age: 20 Year
  Sex: Male

DRUGS (1)
  1. NORDITROPIN [Suspect]
     Active Substance: SOMATROPIN
     Indication: HYPOPITUITARISM
     Route: 058
     Dates: start: 20160825, end: 20161104

REACTIONS (5)
  - Therapy change [None]
  - Agitation [None]
  - Depression [None]
  - Condition aggravated [None]
  - Obsessive-compulsive disorder [None]

NARRATIVE: CASE EVENT DATE: 20160825
